FAERS Safety Report 9275510 (Version 1)
Quarter: 2013Q2

REPORT INFORMATION
  Report Type: Spontaneous
  Country: US (occurrence: US)
  Receive Date: 20130507
  Receipt Date: 20130507
  Transmission Date: 20140414
  Serious: No
  Sender: FDA-Public Use
  Company Number: US-PFIZER INC-2013139951

PATIENT
  Age: 56 Year
  Sex: Female

DRUGS (7)
  1. LYRICA [Suspect]
     Indication: FIBROMYALGIA
     Dosage: 50 MG, 2X/DAY
     Dates: start: 201303
  2. LYRICA [Suspect]
     Dosage: 75 MG, 2X/DAY
  3. LYRICA [Suspect]
     Dosage: 75 MG, 3X/DAY
  4. LYRICA [Suspect]
     Dosage: 150 MG, 2X/DAY
     Dates: start: 20130426
  5. PRILOSEC [Concomitant]
     Indication: GASTROOESOPHAGEAL REFLUX DISEASE
     Dosage: 20.6 MG, 1X/DAY
  6. PAROXETINE HYDROCHLORIDE [Concomitant]
     Indication: DEPRESSION
     Dosage: ONE AND A HALF TABLET OF 20 MG, 1X/DAY
     Dates: start: 2010
  7. HYDROCHLOROTHIAZIDE, VALSARTAN [Concomitant]
     Indication: HYPERTENSION
     Dosage: HALF A TABLET OF 80/12.5MG, 1X/DAY
     Dates: start: 2012

REACTIONS (1)
  - Drug ineffective [Unknown]
